FAERS Safety Report 23827149 (Version 1)
Quarter: 2024Q2

REPORT INFORMATION
  Report Type: Spontaneous
  Country: US (occurrence: US)
  Receive Date: 20240507
  Receipt Date: 20240507
  Transmission Date: 20240716
  Serious: No
  Sender: FDA-Public Use
  Company Number: US-GLENMARK PHARMACEUTICALS-2024GMK089197

PATIENT

DRUGS (1)
  1. RYALTRIS [Suspect]
     Active Substance: MOMETASONE FUROATE MONOHYDRATE\OLOPATADINE HYDROCHLORIDE
     Indication: Product used for unknown indication
     Dosage: INSTILL 1 TO 2 SPRAY INTO EACH NOSTRIL TWICE A DAY, BID
     Route: 045
     Dates: start: 20230504

REACTIONS (2)
  - Product use issue [Unknown]
  - Epistaxis [Unknown]
